FAERS Safety Report 7940757-6 (Version None)
Quarter: 2011Q4

REPORT INFORMATION
  Report Type: 
  Country: None (occurrence: None)
  Receive Date: 20111128
  Receipt Date: 20111123
  Transmission Date: 20120403
  Serious: Yes (Other)
  Sender: FDA-Public Use
  Company Number: DE-PFIZER INC-2011273853

PATIENT
  Age: 66 Year
  Sex: Male
  Weight: 68 kg

DRUGS (9)
  1. CONCOR [Concomitant]
  2. LEVOTHYROXINE SODIUM [Suspect]
  3. INSPRA [Suspect]
     Dosage: 25 MG, UNK
     Dates: start: 20110801
  4. AMIODARONE HCL [Concomitant]
  5. DIGOXIN [Suspect]
  6. RASILEZ [Concomitant]
  7. ESCITALOPRAM [Concomitant]
  8. MARCUMAR [Concomitant]
  9. TORASEMIDE [Concomitant]

REACTIONS (1)
  - MASTITIS [None]
